FAERS Safety Report 14272677 (Version 1)
Quarter: 2017Q4

REPORT INFORMATION
  Report Type: Report from Study
  Country: DE (occurrence: DE)
  Receive Date: 20171211
  Receipt Date: 20171211
  Transmission Date: 20180321
  Serious: Yes (Death, Other)
  Sender: FDA-Public Use
  Company Number: PHHY2017DE150653

PATIENT
  Age: 77 Year
  Sex: Female
  Weight: 52.6 kg

DRUGS (2)
  1. MIDOSTAURIN [Suspect]
     Active Substance: MIDOSTAURIN
     Indication: SYSTEMIC MASTOCYTOSIS
     Dosage: 100 MG, BID (1-0-1)
     Route: 048
     Dates: start: 201701, end: 201705
  2. CLADRIBINE. [Suspect]
     Active Substance: CLADRIBINE
     Indication: SYSTEMIC MASTOCYTOSIS
     Dosage: 0.13 MG/KG, UNK
     Route: 065

REACTIONS (9)
  - Sepsis [Unknown]
  - Neurological symptom [Fatal]
  - Dysphagia [Fatal]
  - Diplopia [Fatal]
  - Neutropenia [Unknown]
  - Gait disturbance [Fatal]
  - Dysarthria [Fatal]
  - Malignant neoplasm progression [Fatal]
  - Systemic mastocytosis [Fatal]

NARRATIVE: CASE EVENT DATE: 201705
